FAERS Safety Report 10621654 (Version 1)
Quarter: 2014Q4

REPORT INFORMATION
  Report Type: Spontaneous
  Country: US (occurrence: None)
  Receive Date: 20141201
  Receipt Date: 20141201
  Transmission Date: 20150529
  Serious: Yes (Other)
  Sender: FDA-Public Use
  Company Number: None

PATIENT
  Age: 56 Year
  Sex: Female
  Weight: 65.32 kg

DRUGS (1)
  1. AMOXICILLIN. [Suspect]
     Active Substance: AMOXICILLIN
     Indication: GINGIVITIS
     Dosage: 1 CAP THREE TIMES DAILY TAKEN BY MOUTH
     Route: 048
     Dates: start: 20141117, end: 20141124

REACTIONS (3)
  - Rash generalised [None]
  - Dyspnoea [None]
  - Erythema [None]

NARRATIVE: CASE EVENT DATE: 20141123
